FAERS Safety Report 9969815 (Version 1)
Quarter: 2014Q1

REPORT INFORMATION
  Report Type: Spontaneous
  Country: US (occurrence: None)
  Receive Date: 20140304
  Receipt Date: 20140304
  Transmission Date: 20141002
  Serious: Yes (Other)
  Sender: FDA-Public Use
  Company Number: None

PATIENT
  Age: 50 Year
  Sex: Female

DRUGS (1)
  1. STRIBILD [Suspect]
     Indication: HIV INFECTION
     Dates: start: 201212

REACTIONS (3)
  - Pain [None]
  - Inflammation [None]
  - Neuropathy peripheral [None]
